FAERS Safety Report 8850965 (Version 3)
Quarter: 2012Q4

REPORT INFORMATION
  Report Type: 
  Country: FI (occurrence: FI)
  Receive Date: 20121019
  Receipt Date: 20121231
  Transmission Date: 20130627
  Serious: Yes (Death, Hospitalization, Other)
  Sender: FDA-Public Use
  Company Number: FI-AMGEN-FINSP2012062239

PATIENT
  Age: 64 Year
  Sex: Female

DRUGS (12)
  1. XGEVA [Suspect]
     Indication: METASTASES TO BONE
     Dosage: 120 mg, q6wk
     Route: 058
     Dates: start: 201202, end: 20120730
  2. XGEVA [Suspect]
     Dosage: 120 mg, q6wk
     Route: 058
     Dates: start: 20120410
  3. XGEVA [Suspect]
     Dosage: 120 mg, q6wk
     Route: 058
     Dates: start: 20120601
  4. XGEVA [Suspect]
     Dosage: 120 mg, UNK
     Route: 058
     Dates: start: 20120730, end: 20120730
  5. XELODA [Concomitant]
     Indication: BREAST CANCER METASTATIC
     Dosage: 3000 mg, UNK
     Route: 048
     Dates: start: 20120118, end: 20120813
  6. CALCICHEW D3 FORTE [Concomitant]
     Indication: HYPOCALCAEMIA
     Dosage: 500 mg, UNK
     Route: 048
     Dates: start: 20120227
  7. KEFALEX [Concomitant]
     Indication: RESPIRATORY TRACT INFECTION
     Dosage: 1500 mg, UNK
     Route: 048
     Dates: start: 20120827, end: 20120905
  8. SOMAC CONTROL [Concomitant]
     Indication: DYSPEPSIA
     Dosage: 40 mg, UNK
     Route: 048
     Dates: start: 20120820
  9. ZOPINOX [Concomitant]
     Indication: SLEEP DISORDER
     Dosage: 7.5 mg, prn
     Route: 048
     Dates: start: 20120820
  10. CAPECITABINE [Concomitant]
     Indication: BREAST CANCER
     Dosage: UNK
  11. CAPECITABINE [Concomitant]
     Indication: METASTASES TO BONE
  12. EXEMESTANE [Concomitant]
     Dosage: UNK
     Dates: start: 201208

REACTIONS (9)
  - Disease progression [Fatal]
  - General physical health deterioration [Not Recovered/Not Resolved]
  - Renal failure [Not Recovered/Not Resolved]
  - Hydronephrosis [Not Recovered/Not Resolved]
  - Blood creatinine increased [Not Recovered/Not Resolved]
  - Nausea [Not Recovered/Not Resolved]
  - Hypocalcaemia [Recovering/Resolving]
  - Cholestasis [Unknown]
  - Infection [Unknown]
